FAERS Safety Report 6565305-7 (Version None)
Quarter: 2010Q1

REPORT INFORMATION
  Report Type: 
  Country: None (occurrence: None)
  Receive Date: 20100201
  Receipt Date: 20100127
  Transmission Date: 20100710
  Serious: Yes (Death)
  Sender: FDA-Public Use
  Company Number: US-ROCHE-682172

PATIENT
  Sex: Male
  Weight: 78 kg

DRUGS (1)
  1. CAPECITABINE [Suspect]
     Indication: BREAST CANCER
     Dosage: ROUTE: BY MOUTH
     Route: 048
     Dates: start: 20091228

REACTIONS (1)
  - DEATH [None]
